FAERS Safety Report 9393705 (Version 1)
Quarter: 2013Q3

REPORT INFORMATION
  Report Type: Spontaneous
  Country: GB (occurrence: GB)
  Receive Date: 20130710
  Receipt Date: 20130710
  Transmission Date: 20140515
  Serious: Yes (Other)
  Sender: FDA-Public Use
  Company Number: GB-TEVA-416558ISR

PATIENT
  Age: 34 Year
  Sex: Male
  Weight: 65.2 kg

DRUGS (3)
  1. MIRTAZAPINE [Suspect]
     Dates: start: 20130419
  2. TRAZODONE [Concomitant]
     Dates: start: 20130312
  3. DIAZEPAM [Concomitant]
     Dates: start: 20130312

REACTIONS (3)
  - Nightmare [Not Recovered/Not Resolved]
  - Mood swings [Unknown]
  - Agitation [Unknown]
